FAERS Safety Report 10589721 (Version 1)
Quarter: 2014Q4

REPORT INFORMATION
  Report Type: Spontaneous
  Country: US (occurrence: None)
  Receive Date: 20141117
  Receipt Date: 20141117
  Transmission Date: 20150529
  Serious: Yes (Other)
  Sender: FDA-Public Use
  Company Number: None

PATIENT
  Age: 38 Year
  Sex: Female
  Weight: 81.65 kg

DRUGS (1)
  1. GABAPENTIN. [Suspect]
     Active Substance: GABAPENTIN
     Indication: PHANTOM PAIN
     Dosage: 2-3 ?TID?ORAL
     Route: 048

REACTIONS (3)
  - Mental disorder [None]
  - Somnolence [None]
  - Memory impairment [None]

NARRATIVE: CASE EVENT DATE: 20140520
